FAERS Safety Report 7611937-4 (Version None)
Quarter: 2011Q3

REPORT INFORMATION
  Report Type: 
  Country: None (occurrence: None)
  Receive Date: 20110715
  Receipt Date: 20110706
  Transmission Date: 20111222
  Serious: Yes (Other)
  Sender: FDA-Public Use
  Company Number: US-ABBOTT-11P-163-0836958-00

PATIENT
  Sex: Female
  Weight: 64.922 kg

DRUGS (11)
  1. HUMIRA [Suspect]
     Route: 058
     Dates: start: 20110601
  2. PREDNISONE [Suspect]
     Indication: IRITIS
  3. BIRTH CONTROL [Concomitant]
     Indication: CONTRACEPTION
     Dosage: DAILY
     Route: 048
  4. LASIX [Concomitant]
     Indication: FLUID RETENTION
     Route: 048
  5. HUMIRA [Suspect]
     Indication: CROHN'S DISEASE
     Route: 058
     Dates: start: 20080201, end: 20101201
  6. LISINOPRIL [Concomitant]
     Indication: HYPERTENSION
     Route: 048
  7. ASACOL HD [Concomitant]
     Indication: CROHN'S DISEASE
     Route: 048
  8. PRILOSEC [Concomitant]
     Indication: GASTROOESOPHAGEAL REFLUX DISEASE
     Route: 048
  9. TYLENOL (CAPLET) [Concomitant]
     Indication: ARTHRALGIA
     Route: 048
  10. PREDNISONE [Suspect]
     Indication: CROHN'S DISEASE
     Route: 048
     Dates: start: 19870101, end: 20100101
  11. VITAMIN TAB [Concomitant]
     Indication: VITAMIN SUPPLEMENTATION

REACTIONS (4)
  - SINUSITIS [None]
  - OSTEONECROSIS [None]
  - ARTHRALGIA [None]
  - BACK PAIN [None]
